FAERS Safety Report 4300823-3 (Version None)
Quarter: 2004Q1

REPORT INFORMATION
  Report Type: 
  Country: None (occurrence: None)
  Receive Date: 20040219
  Receipt Date: 20040204
  Transmission Date: 20041129
  Serious: Yes (Life-Threatening, Hospitalization)
  Sender: FDA-Public Use
  Company Number: 2004IM000273

PATIENT
  Age: 69 Year
  Sex: Female

DRUGS (7)
  1. ADVAFERON (A643_INTEFERON ALFACON-1) [Suspect]
     Indication: HEPATITIS C
     Dosage: 18 MU; QD; SUBCUTANEOUS
     Route: 058
     Dates: start: 20020522, end: 20020611
  2. FAMOTIDINE [Concomitant]
  3. TERPRENONE [Concomitant]
  4. ETHYL LOFLAZEPATE [Concomitant]
  5. KETOTIFEN FUMARATE [Concomitant]
  6. CINAL [Concomitant]
  7. LOXOPROFEN SODIUM [Concomitant]

REACTIONS (1)
  - HEPATITIS [None]
